FAERS Safety Report 4373524-3 (Version None)
Quarter: 2004Q1

REPORT INFORMATION
  Report Type: 
  Country: None (occurrence: None)
  Receive Date: 20040305
  Receipt Date: 20031110
  Transmission Date: 20041129
  Serious: Yes (Other)
  Sender: FDA-Public Use
  Company Number: 2003UW14828

PATIENT
  Age: 77 Year
  Sex: Male

DRUGS (2)
  1. CRESTOR [Suspect]
     Dates: start: 20031107, end: 20031107
  2. BLOOD PRESSURE MEDICATION [Concomitant]

REACTIONS (2)
  - CHEST DISCOMFORT [None]
  - HYPERHIDROSIS [None]
